FAERS Safety Report 5598454-0 (Version None)
Quarter: 2008Q1

REPORT INFORMATION
  Report Type: 
  Country: None (occurrence: None)
  Receive Date: 20080122
  Receipt Date: 20080114
  Transmission Date: 20080703
  Serious: Yes (Disabling)
  Sender: FDA-Public Use
  Company Number: GB-JNJFOC-20080102863

PATIENT
  Sex: Female

DRUGS (2)
  1. DAKTARIN [Suspect]
     Route: 061
  2. DAKTARIN [Suspect]
     Indication: DRUG USE FOR UNKNOWN INDICATION
     Dosage: THE PATIENT HAD 2% OF 15 GRAMMES.
     Route: 061

REACTIONS (3)
  - BLISTER [None]
  - HYPERSENSITIVITY [None]
  - OEDEMA PERIPHERAL [None]
